FAERS Safety Report 12921123 (Version 1)
Quarter: 2016Q4

REPORT INFORMATION
  Report Type: Report from Study
  Country: HU (occurrence: HU)
  Receive Date: 20161107
  Receipt Date: 20161107
  Transmission Date: 20170207
  Serious: Yes (Hospitalization)
  Sender: FDA-Public Use
  Company Number: HU-PFIZER INC-2016507575

PATIENT
  Age: 41 Year
  Sex: Male

DRUGS (16)
  1. TEPERIN [Suspect]
     Active Substance: AMITRIPTYLINE HYDROCHLORIDE
     Indication: DEPRESSION
     Dosage: 12.5 MG, DAILY
     Dates: start: 20110729, end: 20110807
  2. CITAGEN [Concomitant]
     Indication: DEPRESSION
     Dosage: 20 MG, DAILY
     Dates: start: 201601
  3. CLONAZEPAM. [Concomitant]
     Active Substance: CLONAZEPAM
     Indication: ANXIETY
     Dosage: 0.5 MG, DAILY
  4. TEARS NATURALE FREE [Concomitant]
     Active Substance: DEXTRAN 70\HYPROMELLOSE 2910 (4000 MPA.S)
     Indication: DRY EYE
     Dosage: 1 DF, DAILY
     Dates: start: 20120215
  5. OCRELIZUMAB [Suspect]
     Active Substance: OCRELIZUMAB
     Indication: PRIMARY PROGRESSIVE MULTIPLE SCLEROSIS
     Dosage: 260 ML, DAILY
     Route: 042
     Dates: start: 20110510
  6. HELEX [Suspect]
     Active Substance: ALPRAZOLAM
     Dosage: UNK
  7. DICLOFENAC [Concomitant]
     Active Substance: DICLOFENAC
     Indication: BACK PAIN
     Dosage: 100 MG, DAILY
     Dates: start: 20151231
  8. TEPERIN [Suspect]
     Active Substance: AMITRIPTYLINE HYDROCHLORIDE
     Indication: CONDITION AGGRAVATED
     Dosage: 12.5 MG, DAILY
     Dates: start: 20111001, end: 201202
  9. CIALIS [Concomitant]
     Active Substance: TADALAFIL
     Indication: ERECTILE DYSFUNCTION
     Dosage: 10 MG,DAILY
  10. TEPERIN [Suspect]
     Active Substance: AMITRIPTYLINE HYDROCHLORIDE
     Dosage: 25 MG, DAILY
     Dates: start: 201202
  11. CITALOPRAM [Suspect]
     Active Substance: CITALOPRAM HYDROBROMIDE
     Indication: DEPRESSION
     Dosage: 10 MG, DAILY
     Dates: start: 20130722, end: 20131111
  12. DULCOLAX NOS [Concomitant]
     Active Substance: BISACODYL OR DOCUSATE SODIUM
     Indication: CONSTIPATION
     Dosage: 5 MG, DAILY
  13. CITALOPRAM [Suspect]
     Active Substance: CITALOPRAM HYDROBROMIDE
     Dosage: 10 MG, DAILY
     Dates: start: 20131114, end: 201601
  14. XANAX [Suspect]
     Active Substance: ALPRAZOLAM
     Indication: DEPRESSION
     Dosage: 0.5 MG, DAILY
     Dates: start: 20110802
  15. VITAMIN E [Concomitant]
     Active Substance: .ALPHA.-TOCOPHEROL
     Indication: NUTRITIONAL SUPPLEMENTATION
     Dosage: 400 IU, DAILY
  16. OCRELIZUMAB [Suspect]
     Active Substance: OCRELIZUMAB
     Dosage: 260 ML, DAILY
     Route: 042
     Dates: start: 20151215

REACTIONS (8)
  - Infusion related reaction [None]
  - Decubitus ulcer [None]
  - Suicide attempt [Recovered/Resolved]
  - Blood lactate dehydrogenase increased [None]
  - Device issue [None]
  - Pneumonia [None]
  - White blood cell count increased [None]
  - Aspartate aminotransferase increased [None]

NARRATIVE: CASE EVENT DATE: 20160425
